FAERS Safety Report 18372493 (Version 4)
Quarter: 2022Q1

REPORT INFORMATION
  Report Type: Spontaneous
  Country: US (occurrence: US)
  Receive Date: 20201012
  Receipt Date: 20220314
  Transmission Date: 20220423
  Serious: No
  Sender: FDA-Public Use
  Company Number: US-PFIZER INC-2020391067

PATIENT
  Age: 72 Year
  Sex: Female

DRUGS (1)
  1. XELJANZ XR [Suspect]
     Active Substance: TOFACITINIB CITRATE
     Indication: Rheumatoid arthritis
     Dosage: 11 MG

REACTIONS (7)
  - Therapeutic product effect incomplete [Unknown]
  - Limb injury [Unknown]
  - Contusion [Unknown]
  - Rash [Unknown]
  - Blood test abnormal [Unknown]
  - Nasopharyngitis [Unknown]
  - Influenza [Unknown]
